FAERS Safety Report 19482764 (Version 1)
Quarter: 2021Q3

REPORT INFORMATION
  Report Type: Spontaneous
  Country: US (occurrence: US)
  Receive Date: 20210701
  Receipt Date: 20210701
  Transmission Date: 20211014
  Serious: Yes (Hospitalization)
  Sender: FDA-Public Use
  Company Number: US-MYLANLABS-2021M1037825

PATIENT
  Age: 29 Year
  Sex: Male

DRUGS (1)
  1. RISPERIDONE. [Suspect]
     Active Substance: RISPERIDONE
     Indication: AUTISM SPECTRUM DISORDER
     Dosage: UNK
     Route: 065

REACTIONS (7)
  - Pancreatitis acute [Recovered/Resolved]
  - Acidosis hyperchloraemic [Recovered/Resolved]
  - Off label use [Unknown]
  - Metabolic acidosis [Recovered/Resolved]
  - Obesity [Unknown]
  - Diabetic ketoacidosis [Recovered/Resolved]
  - Weight increased [Unknown]
